FAERS Safety Report 6095721-1 (Version None)
Quarter: 2009Q1

REPORT INFORMATION
  Report Type: 
  Country: None (occurrence: None)
  Receive Date: 20090227
  Receipt Date: 20080603
  Transmission Date: 20090719
  Serious: No
  Sender: FDA-Public Use
  Company Number: A0730869A

PATIENT
  Sex: Female

DRUGS (3)
  1. LAMICTAL [Suspect]
     Indication: DRUG USE FOR UNKNOWN INDICATION
     Dosage: 75MG PER DAY
     Route: 048
     Dates: start: 20061201
  2. PROGESTERONE [Concomitant]
  3. DIAZEPAM [Concomitant]

REACTIONS (2)
  - ALOPECIA [None]
  - RASH [None]
